FAERS Safety Report 5734783-5 (Version None)
Quarter: 2008Q2

REPORT INFORMATION
  Report Type: 
  Country: None (occurrence: None)
  Receive Date: 20080512
  Receipt Date: 20080507
  Transmission Date: 20081010
  Serious: Yes (Hospitalization, Other)
  Sender: FDA-Public Use
  Company Number: PHRM2008FR01370

PATIENT
  Age: 65 Year
  Sex: Male
  Weight: 65 kg

DRUGS (2)
  1. TEGRETOL [Suspect]
     Indication: EPILEPSY
     Dosage: 1 G DAILY
     Route: 048
     Dates: start: 19860101
  2. GARDENAL [Concomitant]
     Indication: EPILEPSY
     Dosage: 1 DF DAILY
     Route: 048
     Dates: start: 19860101

REACTIONS (10)
  - ENDOCERVICAL CURETTAGE [None]
  - HAEMATOMA [None]
  - HEADACHE [None]
  - LARYNGEAL OEDEMA [None]
  - LYMPHADENOPATHY [None]
  - METASTASES TO LYMPH NODES [None]
  - RESPIRATORY DEPRESSION [None]
  - SQUAMOUS CELL CARCINOMA [None]
  - SURGERY [None]
  - VISION BLURRED [None]
